FAERS Safety Report 20825061 (Version 1)
Quarter: 2022Q2

REPORT INFORMATION
  Report Type: Spontaneous
  Country: GB (occurrence: GB)
  Receive Date: 20220513
  Receipt Date: 20220513
  Transmission Date: 20220721
  Serious: Yes (Other)
  Sender: FDA-Public Use
  Company Number: GB-AUROBINDO-AUR-APL-2022-016319

PATIENT
  Age: 36 Year
  Sex: Female
  Weight: 50 kg

DRUGS (1)
  1. SERTRALINE [Suspect]
     Active Substance: SERTRALINE HYDROCHLORIDE
     Indication: Anxiety
     Dosage: 50 MILLIGRAM, ONCE A DAY
     Route: 048
     Dates: start: 20220422

REACTIONS (2)
  - Persistent genital arousal disorder [Not Recovered/Not Resolved]
  - Urinary tract discomfort [Not Recovered/Not Resolved]

NARRATIVE: CASE EVENT DATE: 20220422
